FAERS Safety Report 12763136 (Version 1)
Quarter: 2016Q3

REPORT INFORMATION
  Report Type: Spontaneous
  Country: US (occurrence: US)
  Receive Date: 20160920
  Receipt Date: 20160920
  Transmission Date: 20161109
  Serious: Yes (Hospitalization)
  Sender: FDA-Public Use
  Company Number: US-AMNEAL PHARMACEUTICALS-2016AMN00577

PATIENT
  Age: 69 Year
  Sex: Female
  Weight: 88.44 kg

DRUGS (17)
  1. NEURONTIN [Concomitant]
     Active Substance: GABAPENTIN
     Dosage: UNK
     Dates: start: 200908
  2. FOLIC ACID. [Concomitant]
     Active Substance: FOLIC ACID
     Dosage: UNK
     Dates: start: 1995
  3. VITMAIN B12 [Concomitant]
     Dosage: UNK
     Dates: start: 1995
  4. DIOVAN [Concomitant]
     Active Substance: VALSARTAN
     Dosage: UNK
     Dates: start: 2007
  5. DYAZIDE [Concomitant]
     Active Substance: HYDROCHLOROTHIAZIDE\TRIAMTERENE
     Dosage: UNK
     Dates: start: 200601
  6. VITMAIN D [Concomitant]
     Dosage: UNK
     Dates: start: 20080301
  7. CRESTOR [Concomitant]
     Active Substance: ROSUVASTATIN CALCIUM
     Dosage: UNK
     Dates: start: 200908
  8. DIGOXIN. [Concomitant]
     Active Substance: DIGOXIN
  9. MAGNESSIUM [Concomitant]
     Dosage: UNK
     Dates: start: 1995
  10. LISINOPRIL. [Concomitant]
     Active Substance: LISINOPRIL
     Dosage: UNK
     Dates: start: 2003
  11. PLAVIX [Concomitant]
     Active Substance: CLOPIDOGREL BISULFATE
     Dosage: UNK
     Dates: start: 20090517
  12. VITAMIN B6 [Concomitant]
     Active Substance: PYRIDOXINE HYDROCHLORIDE
     Dosage: UNK
     Dates: start: 1995
  13. IRON [Concomitant]
     Active Substance: IRON
     Dosage: UNK
     Dates: start: 200707
  14. NAPROXEN. [Suspect]
     Active Substance: NAPROXEN
     Indication: OSTEOARTHRITIS
     Dosage: UNK
     Dates: start: 20070227, end: 20090817
  15. NEXIUM [Concomitant]
     Active Substance: ESOMEPRAZOLE MAGNESIUM
     Dosage: UNK
     Dates: start: 20070226
  16. FLUOXETINE [Concomitant]
     Active Substance: FLUOXETINE HYDROCHLORIDE
     Dosage: UNK
     Dates: start: 200201
  17. CALCIUM WITH VITAMIN D [Concomitant]
     Active Substance: CALCIUM\VITAMIN D
     Dosage: UNK
     Dates: start: 2000

REACTIONS (4)
  - Atrial fibrillation [Recovered/Resolved]
  - Coronary artery disease [Recovered/Resolved]
  - Non-cardiac chest pain [Recovered/Resolved]
  - Pulmonary congestion [Unknown]

NARRATIVE: CASE EVENT DATE: 20090410
